FAERS Safety Report 16956917 (Version 1)
Quarter: 2019Q4

REPORT INFORMATION
  Report Type: Spontaneous
  Country: DE (occurrence: DE)
  Receive Date: 20191024
  Receipt Date: 20191024
  Transmission Date: 20200122
  Serious: Yes (Hospitalization, Other)
  Sender: FDA-Public Use
  Company Number: DE-ROCHE-2442342

PATIENT

DRUGS (19)
  1. TOCILIZUMAB. [Suspect]
     Active Substance: TOCILIZUMAB
     Route: 042
     Dates: start: 2012, end: 201308
  2. METHOTREXAT [METHOTREXATE] [Concomitant]
     Active Substance: METHOTREXATE
     Route: 058
  3. INSULIN [Concomitant]
     Active Substance: INSULIN NOS
  4. TOCILIZUMAB. [Suspect]
     Active Substance: TOCILIZUMAB
     Indication: RHEUMATOID ARTHRITIS
     Route: 042
     Dates: start: 200904, end: 201001
  5. METHOTREXAT [METHOTREXATE] [Concomitant]
     Active Substance: METHOTREXATE
     Route: 065
  6. SULFASALAZINE DELAYED-RELEASE [Concomitant]
     Active Substance: SULFASALAZINE
  7. GOLIMUMAB [Concomitant]
     Active Substance: GOLIMUMAB
  8. TOFACITINIB [Concomitant]
     Active Substance: TOFACITINIB
     Route: 065
  9. RITUXIMAB. [Suspect]
     Active Substance: RITUXIMAB
     Indication: RHEUMATOID ARTHRITIS
     Route: 065
     Dates: start: 200808
  10. PREDNISOLON [PREDNISOLONE] [Concomitant]
     Active Substance: PREDNISOLONE
     Indication: RHEUMATOID ARTHRITIS
     Route: 065
  11. PREDNISOLON [PREDNISOLONE] [Concomitant]
     Active Substance: PREDNISOLONE
     Route: 065
  12. PREDNISOLON [PREDNISOLONE] [Concomitant]
     Active Substance: PREDNISOLONE
     Route: 065
  13. PREDNISOLON [PREDNISOLONE] [Concomitant]
     Active Substance: PREDNISOLONE
     Route: 065
  14. RISEDRONAT [Suspect]
     Active Substance: RISEDRONATE SODIUM
     Indication: PRODUCT USED FOR UNKNOWN INDICATION
     Route: 065
  15. FALITHROM [Concomitant]
     Active Substance: PHENPROCOUMON
     Indication: ATRIAL FIBRILLATION
  16. TOCILIZUMAB. [Suspect]
     Active Substance: TOCILIZUMAB
     Route: 042
     Dates: start: 201311, end: 201607
  17. METHOTREXAT [METHOTREXATE] [Concomitant]
     Active Substance: METHOTREXATE
     Route: 058
  18. ABATACEPT [Concomitant]
     Active Substance: ABATACEPT
     Route: 065
  19. CERTOLIZUMAB PEGOL [Concomitant]
     Active Substance: CERTOLIZUMAB PEGOL
     Route: 058

REACTIONS (43)
  - Neoplasm malignant [Recovered/Resolved]
  - Hyperbilirubinaemia [Unknown]
  - Bronchitis [Unknown]
  - Chronic obstructive pulmonary disease [Unknown]
  - Blood glucose abnormal [Unknown]
  - Atrial fibrillation [Unknown]
  - Delusional disorder, unspecified type [Unknown]
  - Arthritis bacterial [Unknown]
  - Polyarthritis [Unknown]
  - Joint swelling [Unknown]
  - Obsessive-compulsive personality disorder [Unknown]
  - Benign prostatic hyperplasia [Unknown]
  - Gastritis erosive [Unknown]
  - Atrial fibrillation [Unknown]
  - Hypersensitivity vasculitis [Unknown]
  - Abdominal pain upper [Unknown]
  - Osteoarthritis [Unknown]
  - Depression [Unknown]
  - Diabetes mellitus [Unknown]
  - Embolism arterial [Recovered/Resolved]
  - Pyrexia [Unknown]
  - Disease progression [Unknown]
  - Peripheral swelling [Unknown]
  - Gastrointestinal haemorrhage [Unknown]
  - Mobility decreased [Unknown]
  - Infection [Unknown]
  - Abdominal pain upper [Unknown]
  - General physical health deterioration [Unknown]
  - Myocardial ischaemia [Recovered/Resolved]
  - Illness anxiety disorder [Unknown]
  - Synovitis [Unknown]
  - Respiratory tract infection [Unknown]
  - Dementia [Unknown]
  - Haemorrhage [Unknown]
  - Rheumatoid arthritis [Unknown]
  - Sinusitis [Unknown]
  - Embolic stroke [Unknown]
  - Pain [Unknown]
  - Jaundice [Unknown]
  - Anxiety [Unknown]
  - Product dose omission [Unknown]
  - Upper respiratory tract infection [Unknown]
  - Joint swelling [Unknown]

NARRATIVE: CASE EVENT DATE: 2009
